FAERS Safety Report 13594809 (Version 1)
Quarter: 2017Q2

REPORT INFORMATION
  Report Type: Other
  Country: LK (occurrence: LK)
  Receive Date: 20170530
  Receipt Date: 20170530
  Transmission Date: 20170830
  Serious: Yes (Other)
  Sender: FDA-Public Use
  Company Number: LK-MERCK KGAA-2021407

PATIENT
  Age: 1 Day
  Sex: Male
  Weight: 1.7 kg

DRUGS (1)
  1. NOVOTHYROX [Suspect]
     Active Substance: LEVOTHYROXINE SODIUM
     Indication: POST PROCEDURAL HYPOTHYROIDISM

REACTIONS (7)
  - Neonatal thyrotoxicosis [Recovered/Resolved]
  - Microencephaly [Unknown]
  - Low birth weight baby [Unknown]
  - Foetal distress syndrome [Recovered/Resolved]
  - Craniosynostosis [Unknown]
  - Premature baby [Recovered/Resolved]
  - Foetal exposure during pregnancy [Recovered/Resolved]
